FAERS Safety Report 21023843 (Version 1)
Quarter: 2022Q2

REPORT INFORMATION
  Report Type: Spontaneous
  Country: US (occurrence: None)
  Receive Date: 20220629
  Receipt Date: 20220629
  Transmission Date: 20220721
  Serious: No
  Sender: FDA-Public Use
  Company Number: None

PATIENT
  Age: 62 Year
  Sex: Male

DRUGS (1)
  1. KESIMPTA [Suspect]
     Active Substance: OFATUMUMAB
     Route: 058
     Dates: start: 20220201, end: 20220604

REACTIONS (7)
  - Insomnia [None]
  - Arthralgia [None]
  - Joint swelling [None]
  - Joint swelling [None]
  - Joint swelling [None]
  - Joint swelling [None]
  - Gait disturbance [None]

NARRATIVE: CASE EVENT DATE: 20220201
